FAERS Safety Report 8024942-3 (Version None)
Quarter: 2012Q1

REPORT INFORMATION
  Report Type: 
  Country: None (occurrence: None)
  Receive Date: 20120105
  Receipt Date: 20111228
  Transmission Date: 20120608
  Serious: Yes (Hospitalization, Other)
  Sender: FDA-Public Use
  Company Number: PHHY2011DE109828

PATIENT
  Sex: Female
  Weight: 80 kg

DRUGS (8)
  1. RASILEZ HCT [Suspect]
     Indication: HYPERTENSION
     Dosage: 1 DF
     Route: 048
     Dates: start: 20081104
  2. ASPIRIN [Concomitant]
     Indication: ARTERIOSCLEROSIS CORONARY ARTERY
     Dosage: 100 MG/DAY
     Route: 048
     Dates: start: 20070101
  3. ESOMEPRAZOLE SODIUM [Suspect]
     Indication: GASTROOESOPHAGEAL REFLUX DISEASE
     Dosage: 20 MG/DAY
     Route: 048
     Dates: start: 20101109
  4. LEVOTHYROXINE SODIUM [Concomitant]
     Indication: THYROID DISORDER
     Dosage: 100 UG/DAY
     Route: 048
     Dates: start: 20070101
  5. INUVAIR [Suspect]
     Indication: CHRONIC OBSTRUCTIVE PULMONARY DISEASE
     Dates: start: 20070101
  6. AMLODIPINE [Suspect]
     Indication: HYPERTENSION
     Dosage: 10 MG/DAY
     Route: 048
     Dates: start: 20081117
  7. ALLOPURINOL [Concomitant]
     Indication: HYPERURICAEMIA
     Dosage: 100 MG/DAY
     Route: 048
     Dates: start: 20070101
  8. SPIRONOLACTONE [Suspect]
     Indication: HYPERTENSION
     Dosage: 50 MG/DAY
     Route: 048
     Dates: start: 20081209

REACTIONS (5)
  - FLATULENCE [None]
  - UTERINE CANCER [None]
  - DYSPNOEA [None]
  - NAUSEA [None]
  - DIABETES MELLITUS [None]
